FAERS Safety Report 9993419 (Version 2)
Quarter: 2014Q1

REPORT INFORMATION
  Report Type: Spontaneous
  Country: NL (occurrence: NL)
  Receive Date: 20140310
  Receipt Date: 20140313
  Transmission Date: 20141002
  Serious: Yes (Life-Threatening, Other)
  Sender: FDA-Public Use
  Company Number: NL-PFIZER INC-2014067497

PATIENT
  Age: 24 Year
  Sex: Male
  Weight: 110 kg

DRUGS (1)
  1. VENLAFAXINE HCL [Suspect]
     Indication: DEPRESSED MOOD
     Dosage: 75 MG, 1X/DAY
     Dates: start: 20131025, end: 2014

REACTIONS (18)
  - Aggression [Recovered/Resolved with Sequelae]
  - Homicidal ideation [Unknown]
  - Weight increased [Not Recovered/Not Resolved]
  - Chills [Not Recovered/Not Resolved]
  - Sleep disorder [Not Recovered/Not Resolved]
  - Rash [Recovered/Resolved]
  - Abnormal dreams [Not Recovered/Not Resolved]
  - Bruxism [Recovered/Resolved]
  - Libido decreased [Recovered/Resolved]
  - Erectile dysfunction [Recovered/Resolved]
  - Muscle spasticity [Not Recovered/Not Resolved]
  - Balance disorder [Recovered/Resolved]
  - Fall [Recovered/Resolved]
  - Nervous system disorder [Recovered/Resolved]
  - Drug withdrawal syndrome [Recovered/Resolved]
  - Headache [Recovered/Resolved]
  - Mood altered [Recovered/Resolved]
  - Agitation [Recovered/Resolved]
